FAERS Safety Report 12204432 (Version 1)
Quarter: 2016Q1

REPORT INFORMATION
  Report Type: Spontaneous
  Country: GB (occurrence: GB)
  Receive Date: 20160323
  Receipt Date: 20160323
  Transmission Date: 20160526
  Serious: Yes (Other)
  Sender: FDA-Public Use
  Company Number: GB-ROCHE-1729609

PATIENT
  Age: 37 Year
  Sex: Female

DRUGS (10)
  1. CAPECITABINE. [Suspect]
     Active Substance: CAPECITABINE
     Indication: BREAST CANCER
     Route: 065
  2. HERCEPTIN [Suspect]
     Active Substance: TRASTUZUMAB
     Indication: BREAST CANCER
     Route: 065
  3. HERCEPTIN [Suspect]
     Active Substance: TRASTUZUMAB
     Route: 065
     Dates: start: 201510
  4. DOCETAXEL. [Concomitant]
     Active Substance: DOCETAXEL
  5. KADCYLA [Suspect]
     Active Substance: ADO-TRASTUZUMAB EMTANSINE
     Indication: BREAST CANCER
     Route: 065
     Dates: end: 201509
  6. EPIRUBICIN [Concomitant]
     Active Substance: EPIRUBICIN
  7. CYCLOPHOSPHAMIDE. [Concomitant]
     Active Substance: CYCLOPHOSPHAMIDE
  8. VINORELBINE [Concomitant]
     Active Substance: VINORELBINE\VINORELBINE TARTRATE
  9. FLUOROURACIL. [Concomitant]
     Active Substance: FLUOROURACIL
  10. PACLITAXEL. [Concomitant]
     Active Substance: PACLITAXEL
     Route: 065
     Dates: start: 201510

REACTIONS (5)
  - Metastases to lung [Unknown]
  - Pain in extremity [Unknown]
  - Chest wall mass [Unknown]
  - Disease recurrence [Unknown]
  - Peripheral swelling [Unknown]
